FAERS Safety Report 17926858 (Version 1)
Quarter: 2020Q2

REPORT INFORMATION
  Report Type: Other
  Country: US (occurrence: US)
  Receive Date: 20200623
  Receipt Date: 20200623
  Transmission Date: 20200714
  Serious: No
  Sender: FDA-Public Use
  Company Number: US-BIOVITRUM-2019US1113

PATIENT
  Sex: Female

DRUGS (2)
  1. KINERET [Suspect]
     Active Substance: ANAKINRA
     Indication: RHEUMATOID ARTHRITIS
     Route: 058
     Dates: start: 201904
  2. LOSARTAN. [Concomitant]
     Active Substance: LOSARTAN

REACTIONS (9)
  - Ear pain [Unknown]
  - Mouth ulceration [Unknown]
  - Sneezing [Unknown]
  - Injection site pain [Unknown]
  - Rash [Unknown]
  - Plantar fasciitis [Unknown]
  - Headache [Unknown]
  - Arthralgia [Unknown]
  - Dry eye [Unknown]
